FAERS Safety Report 4954658-9 (Version None)
Quarter: 2006Q1

REPORT INFORMATION
  Report Type: 
  Country: None (occurrence: None)
  Receive Date: 20060327
  Receipt Date: 20060207
  Transmission Date: 20060701
  Serious: Yes (Hospitalization)
  Sender: FDA-Public Use
  Company Number: DE-ROCHE-435156

PATIENT
  Sex: Male

DRUGS (2)
  1. CELLCEPT [Suspect]
     Route: 065
  2. RAPAMUNE [Suspect]
     Route: 065

REACTIONS (1)
  - PULMONARY HAEMORRHAGE [None]
